FAERS Safety Report 7193614-X (Version None)
Quarter: 2010Q4

REPORT INFORMATION
  Report Type: 
  Country: None (occurrence: None)
  Receive Date: 20101223
  Receipt Date: 20101215
  Transmission Date: 20110411
  Serious: Yes (Other)
  Sender: FDA-Public Use
  Company Number: JP-TEVA-260657ISR

PATIENT
  Age: 59 Year
  Sex: Male

DRUGS (3)
  1. CISPLATIN [Suspect]
     Indication: BLADDER CANCER RECURRENT
     Route: 013
     Dates: start: 20100301
  2. EPIRUBICIN [Suspect]
     Indication: BLADDER CANCER RECURRENT
     Route: 013
     Dates: start: 20100301
  3. METHOTREXATE [Suspect]
     Indication: BLADDER CANCER RECURRENT
     Route: 013
     Dates: start: 20100301

REACTIONS (1)
  - RECTAL ULCER [None]
